FAERS Safety Report 4466991-8 (Version None)
Quarter: 2004Q4

REPORT INFORMATION
  Report Type: 
  Country: None (occurrence: None)
  Receive Date: 20041005
  Receipt Date: 20040920
  Transmission Date: 20050328
  Serious: No
  Sender: FDA-Public Use
  Company Number: 2004GB02248

PATIENT
  Age: 55 Year
  Sex: Male

DRUGS (3)
  1. CRESTOR [Suspect]
     Indication: LIPIDS INCREASED
     Dosage: 10 MG QD PO
     Route: 048
     Dates: start: 20040511
  2. BENDROFLUAZIDE [Concomitant]
  3. RAMIPRIL [Concomitant]

REACTIONS (1)
  - BLOOD TRIGLYCERIDES INCREASED [None]
